FAERS Safety Report 18407566 (Version 1)
Quarter: 2020Q4

REPORT INFORMATION
  Report Type: Other
  Country: US (occurrence: US)
  Receive Date: 20201021
  Receipt Date: 20201021
  Transmission Date: 20210114
  Serious: Yes (Hospitalization)
  Sender: FDA-Public Use
  Company Number: US-ROCHE-2698953

PATIENT
  Sex: Female

DRUGS (1)
  1. OCREVUS [Suspect]
     Active Substance: OCRELIZUMAB
     Indication: RELAPSING MULTIPLE SCLEROSIS
     Dosage: 300MG IV TWICE TWO WEEKS AND 600MG IV ONCE EVERY MONTH.
     Route: 042
     Dates: start: 20190226

REACTIONS (1)
  - Pneumonia [Recovered/Resolved]
